FAERS Safety Report 8960464 (Version 1)
Quarter: 2012Q4

REPORT INFORMATION
  Report Type: Spontaneous
  Country: US (occurrence: None)
  Receive Date: 20121211
  Receipt Date: 20121211
  Transmission Date: 20130627
  Serious: Yes (Life-Threatening, Hospitalization)
  Sender: FDA-Public Use
  Company Number: None

PATIENT
  Sex: Female
  Weight: 45 kg

DRUGS (5)
  1. BORTEZOMIB [Suspect]
     Indication: GVHD
     Dosage: SQ 0.4mg/m2 QW
     Route: 058
     Dates: start: 20121120, end: 20121204
  2. MYCOPHENOLATE [Concomitant]
  3. PREDNISONE [Concomitant]
  4. SIROLIMUS [Concomitant]
  5. TACROLIMUS [Concomitant]

REACTIONS (6)
  - Pyrexia [None]
  - Oropharyngeal pain [None]
  - Dyspnoea [None]
  - Musculoskeletal pain [None]
  - Streptococcus test positive [None]
  - Pneumonia [None]
